FAERS Safety Report 7971790-6 (Version None)
Quarter: 2011Q4

REPORT INFORMATION
  Report Type: 
  Country: None (occurrence: None)
  Receive Date: 20111212
  Receipt Date: 20111129
  Transmission Date: 20120403
  Serious: Yes (Other)
  Sender: FDA-Public Use
  Company Number: GB-MYLANLABS-2011S1014722

PATIENT
  Age: 95 Year
  Sex: Male

DRUGS (4)
  1. TAMSULOSIN HCL [Suspect]
     Indication: MICTURITION URGENCY
  2. TAMSULOSIN HCL [Suspect]
     Indication: POLLAKIURIA
  3. AMITRIPTYLINE HCL [Suspect]
     Indication: PRODUCT USED FOR UNKNOWN INDICATION
  4. VESICARE [Suspect]
     Indication: BLADDER SPASM
     Route: 048
     Dates: start: 20091124, end: 20091224

REACTIONS (3)
  - HALLUCINATION [None]
  - PARANOIA [None]
  - MENTAL DISORDER [None]
